FAERS Safety Report 8572563 (Version 2)
Quarter: 2013Q2

REPORT INFORMATION
  Report Type: Spontaneous
  Country: US (occurrence: US)
  Receive Date: 20120522
  Receipt Date: 20130524
  Transmission Date: 20140414
  Serious: No
  Sender: FDA-Public Use
  Company Number: US-BIOGENIDEC-2012BI017171

PATIENT
  Age: 43 Year
  Sex: Female

DRUGS (1)
  1. TYSABRI [Suspect]
     Indication: MULTIPLE SCLEROSIS
     Route: 042
     Dates: start: 20070219

REACTIONS (5)
  - Tooth disorder [Not Recovered/Not Resolved]
  - Tooth fracture [Not Recovered/Not Resolved]
  - Fall [Recovered/Resolved]
  - Osteoporosis [Not Recovered/Not Resolved]
  - Arthropathy [Not Recovered/Not Resolved]
